FAERS Safety Report 5932922-4 (Version None)
Quarter: 2008Q4

REPORT INFORMATION
  Report Type: 
  Country: None (occurrence: None)
  Receive Date: 20081028
  Receipt Date: 20081021
  Transmission Date: 20090506
  Serious: Yes (Hospitalization, Other)
  Sender: FDA-Public Use
  Company Number: GB-TEVA-179355ISR

PATIENT
  Age: 6 Decade
  Sex: Female

DRUGS (2)
  1. RAMIPRIL [Suspect]
  2. SODIUM AUROTHIOMALATE [Interacting]

REACTIONS (6)
  - BLOOD PRESSURE DECREASED [None]
  - BURNING SENSATION [None]
  - DRUG INTERACTION [None]
  - NAUSEA [None]
  - RASH [None]
  - SYNCOPE [None]
